FAERS Safety Report 7360105-2 (Version None)
Quarter: 2011Q1

REPORT INFORMATION
  Report Type: 
  Country: None (occurrence: None)
  Receive Date: 20110318
  Receipt Date: 20110310
  Transmission Date: 20110831
  Serious: Yes (Hospitalization)
  Sender: FDA-Public Use
  Company Number: US-BIOGENIDEC-2011BI009100

PATIENT
  Sex: Female

DRUGS (1)
  1. TYSABRI [Suspect]
     Indication: MULTIPLE SCLEROSIS
     Route: 042
     Dates: start: 20061204

REACTIONS (6)
  - WOUND [None]
  - THROMBOSIS [None]
  - PYREXIA [None]
  - ANAEMIA [None]
  - URINARY TRACT INFECTION [None]
  - WOUND INFECTION [None]
